FAERS Safety Report 4269850-9 (Version None)
Quarter: 2004Q1

REPORT INFORMATION
  Report Type: 
  Country: None (occurrence: None)
  Receive Date: 20040113
  Receipt Date: 20040113
  Transmission Date: 20041129
  Serious: Yes (Hospitalization)
  Sender: FDA-Public Use
  Company Number: None

PATIENT
  Age: 84 Year
  Sex: Male

DRUGS (6)
  1. WARFARIN SODIUM [Suspect]
     Indication: DEEP VEIN THROMBOSIS
     Dosage: 7.5 MG QD EXCEPT M-W-F
     Dates: start: 20020801
  2. DSS [Concomitant]
  3. TERAZOSIN HCL [Concomitant]
  4. FLUTAMIDE [Concomitant]
  5. LISINOPRIL [Concomitant]
  6. GOSERELIN [Concomitant]

REACTIONS (2)
  - ANAEMIA [None]
  - GASTROINTESTINAL HAEMORRHAGE [None]
